FAERS Safety Report 18149979 (Version 1)
Quarter: 2020Q3

REPORT INFORMATION
  Report Type: Spontaneous
  Country: US (occurrence: US)
  Receive Date: 20200814
  Receipt Date: 20200814
  Transmission Date: 20201103
  Serious: No
  Sender: FDA-Public Use
  Company Number: US-SA-2020SA212630

PATIENT

DRUGS (8)
  1. CELEBREX [Concomitant]
     Active Substance: CELECOXIB
  2. KEVZARA [Suspect]
     Active Substance: SARILUMAB
     Indication: RHEUMATOID ARTHRITIS
     Dosage: 200 MG, QOW
     Route: 058
     Dates: start: 201912
  3. HYDROCODONE BITARTRATE. [Concomitant]
     Active Substance: HYDROCODONE BITARTRATE
  4. TYLENOL COUGH/THROAT [Concomitant]
  5. VITAMIN D [VITAMIN D NOS] [Concomitant]
     Active Substance: VITAMIN D NOS
  6. DIFLUCAN [Concomitant]
     Active Substance: FLUCONAZOLE
  7. KEVZARA [Suspect]
     Active Substance: SARILUMAB
     Dosage: UNK
  8. GLUCOSAMINE CHONDROITIN CALCIUM [Concomitant]

REACTIONS (1)
  - Product use issue [Unknown]
